FAERS Safety Report 16221266 (Version 1)
Quarter: 2019Q2

REPORT INFORMATION
  Report Type: Spontaneous
  Country: CH (occurrence: SZ)
  Receive Date: 20190422
  Receipt Date: 20190422
  Transmission Date: 20190711
  Serious: Yes (Life-Threatening, Hospitalization, Other)
  Sender: FDA-Public Use
  Company Number: CH-ACCORD-122229

PATIENT
  Age: 47 Year

DRUGS (5)
  1. VINCRISTINE [Suspect]
     Active Substance: VINCRISTINE
     Indication: ACUTE LYMPHOCYTIC LEUKAEMIA
     Dates: start: 2015
  2. MERCAPTOPURINE. [Suspect]
     Active Substance: MERCAPTOPURINE
     Indication: ACUTE LYMPHOCYTIC LEUKAEMIA
     Dates: start: 2015
  3. PREDNISONE/PREDNISONE ACETATE [Suspect]
     Active Substance: PREDNISONE ACETATE
     Indication: ACUTE LYMPHOCYTIC LEUKAEMIA
     Dates: start: 2015
  4. TACROLIMUS. [Suspect]
     Active Substance: TACROLIMUS
     Indication: GRAFT VERSUS HOST DISEASE IN LIVER
     Dates: start: 2016
  5. METHOTREXATE. [Suspect]
     Active Substance: METHOTREXATE
     Indication: ACUTE LYMPHOCYTIC LEUKAEMIA
     Dates: start: 2015

REACTIONS (3)
  - Drug ineffective [Unknown]
  - Acute myeloid leukaemia [Recovered/Resolved]
  - Chromosomal mutation [Recovered/Resolved]

NARRATIVE: CASE EVENT DATE: 2016
